FAERS Safety Report 24151764 (Version 1)
Quarter: 2024Q3

REPORT INFORMATION
  Report Type: Spontaneous
  Country: GB (occurrence: GB)
  Receive Date: 20240730
  Receipt Date: 20240730
  Transmission Date: 20241017
  Serious: Yes (Hospitalization, Other)
  Sender: ACCORD
  Company Number: GB-PHARMVIT-4556-565758-ER24-RN1099

PATIENT
  Age: 70 Year
  Sex: Female

DRUGS (1)
  1. ISOSORBIDE MONONITRATE [Suspect]
     Active Substance: ISOSORBIDE MONONITRATE
     Indication: Prinzmetal angina
     Dosage: 40MG,QD

REACTIONS (2)
  - Acute coronary syndrome [Recovered/Resolved]
  - Tachyphylaxis [Recovered/Resolved]
